FAERS Safety Report 8767108 (Version 1)
Quarter: 2012Q4

REPORT INFORMATION
  Report Type: 
  Country: TR (occurrence: TR)
  Receive Date: 20120904
  Receipt Date: 20120904
  Transmission Date: 20130627
  Serious: Yes (Death)
  Sender: FDA-Public Use
  Company Number: TR-JNJFOC-20120814008

PATIENT

DRUGS (3)
  1. DOXORUBICIN [Suspect]
     Indication: NASOPHARYNGEAL CANCER
     Dosage: day 1

repeated every 21
     Route: 042
  2. IFOSFAMIDE [Suspect]
     Indication: NASOPHARYNGEAL CANCER
     Dosage: days 1-3
     Route: 065
  3. MESNA [Suspect]
     Indication: NASOPHARYNGEAL CANCER
     Dosage: days 1-3
     Route: 065

REACTIONS (2)
  - Tumour lysis syndrome [Fatal]
  - Off label use [Unknown]
